FAERS Safety Report 24407689 (Version 1)
Quarter: 2024Q4

REPORT INFORMATION
  Report Type: Spontaneous
  Country: US (occurrence: US)
  Receive Date: 20241007
  Receipt Date: 20241007
  Transmission Date: 20250115
  Serious: No
  Sender: RECKITT BENCKISER
  Company Number: US-INDIVIOR US-INDV-142308-2023

PATIENT
  Sex: Male

DRUGS (6)
  1. SUBOXONE [Suspect]
     Active Substance: BUPRENORPHINE HYDROCHLORIDE\NALOXONE HYDROCHLORIDE
     Indication: Product used for unknown indication
     Dosage: UNK
     Route: 065
     Dates: start: 2023
  2. RELUGOLIX [Suspect]
     Active Substance: RELUGOLIX
     Indication: Prostate cancer
     Dosage: 360 MILLIGRAM (ONE DAY)
     Route: 048
     Dates: start: 20230816, end: 20230816
  3. RELUGOLIX [Suspect]
     Active Substance: RELUGOLIX
     Dosage: 120 MILLIGRAM, QD
     Route: 048
     Dates: start: 20230817
  4. RELUGOLIX [Suspect]
     Active Substance: RELUGOLIX
     Dosage: UNK
     Route: 065
  5. RELUGOLIX [Suspect]
     Active Substance: RELUGOLIX
     Dosage: UNK
     Route: 065
  6. DAROLUTAMIDE [Concomitant]
     Active Substance: DAROLUTAMIDE
     Indication: Product used for unknown indication
     Dosage: UNK
     Route: 065

REACTIONS (7)
  - Weight decreased [Not Recovered/Not Resolved]
  - Orthostatic hypotension [Unknown]
  - Dizziness [Not Recovered/Not Resolved]
  - Fatigue [Not Recovered/Not Resolved]
  - Hypoaesthesia [Unknown]
  - Decreased appetite [Not Recovered/Not Resolved]
  - Abdominal discomfort [Unknown]

NARRATIVE: CASE EVENT DATE: 20230101
